FAERS Safety Report 10060841 (Version 1)
Quarter: 2014Q2

REPORT INFORMATION
  Report Type: Report from Study
  Country: US (occurrence: US)
  Receive Date: 20140404
  Receipt Date: 20140404
  Transmission Date: 20141212
  Serious: Yes (Hospitalization, Other)
  Sender: FDA-Public Use
  Company Number: US-ABBVIE-14P-163-1218706-00

PATIENT
  Sex: Female
  Weight: 90.8 kg

DRUGS (3)
  1. HUMIRA [Suspect]
     Indication: CROHN^S DISEASE
     Route: 058
     Dates: start: 2006, end: 2007
  2. HUMIRA [Suspect]
     Route: 058
     Dates: start: 200811, end: 200902
  3. GLUCOPHAGE [Concomitant]
     Indication: BLOOD INSULIN INCREASED

REACTIONS (4)
  - Intestinal obstruction [Recovered/Resolved]
  - Treatment noncompliance [Recovered/Resolved]
  - Crohn^s disease [Not Recovered/Not Resolved]
  - Injection site pain [Not Recovered/Not Resolved]
